FAERS Safety Report 15321104 (Version 1)
Quarter: 2018Q3

REPORT INFORMATION
  Report Type: Spontaneous
  Country: US (occurrence: US)
  Receive Date: 20180827
  Receipt Date: 20180827
  Transmission Date: 20181010
  Serious: No
  Sender: FDA-Public Use
  Company Number: US-SA-2018SA237134

PATIENT
  Age: 63 Year
  Sex: Female

DRUGS (1)
  1. ADMELOG [Suspect]
     Active Substance: INSULIN LISPRO
     Indication: TYPE 2 DIABETES MELLITUS
     Dosage: UNK UNK, TID , 9 UNITS IN THE AM, 6 UNITS AT MID DAY AND 6 UNITS IN THE EVENING
     Route: 065
     Dates: start: 20180820

REACTIONS (1)
  - Blood glucose fluctuation [Unknown]
